FAERS Safety Report 5735132-9 (Version None)
Quarter: 2008Q2

REPORT INFORMATION
  Report Type: 
  Country: None (occurrence: None)
  Receive Date: 20080508
  Receipt Date: 20080508
  Transmission Date: 20081010
  Serious: Yes (Other)
  Sender: FDA-Public Use
  Company Number: None

PATIENT
  Age: 49 Year
  Sex: Female
  Weight: 63.5036 kg

DRUGS (2)
  1. CREST PRO-HEALTH CETYPYRIDINIUM CLORIDE 0.07% PROCTOR AND GAMBLE [Suspect]
     Indication: DENTAL PLAQUE
     Dosage: ONCE DAILY DAILY PO
     Route: 048
     Dates: start: 20050101, end: 20080508
  2. CREST PRO-HEALTH CETYPYRIDINIUM CLORIDE 0.07% PROCTOR AND GAMBLE [Suspect]
     Indication: GINGIVITIS
     Dosage: ONCE DAILY DAILY PO
     Route: 048
     Dates: start: 20050101, end: 20080508

REACTIONS (1)
  - TOOTH DISCOLOURATION [None]
